FAERS Safety Report 4415151-5 (Version None)
Quarter: 2004Q3

REPORT INFORMATION
  Report Type: 
  Country: None (occurrence: None)
  Receive Date: 20040730
  Receipt Date: 20040716
  Transmission Date: 20050211
  Serious: No
  Sender: FDA-Public Use
  Company Number: 04P-167-0264935-00

PATIENT
  Age: 61 Year
  Sex: Female

DRUGS (6)
  1. MERIDIA [Suspect]
     Dosage: 10 MG, 1 IN 1 D, ORAL
     Route: 048
     Dates: start: 20040503
  2. INSULIN [Concomitant]
  3. FUROSEMIDE [Concomitant]
  4. QUININE SULFATE [Concomitant]
  5. METFORMIN HCL [Concomitant]
  6. LANSOPRAZOLE [Concomitant]

REACTIONS (2)
  - DEHYDRATION [None]
  - HYPERKALAEMIA [None]
